FAERS Safety Report 10560584 (Version 10)
Quarter: 2017Q3

REPORT INFORMATION
  Report Type: Spontaneous
  Country: US (occurrence: US)
  Receive Date: 20141103
  Receipt Date: 20170803
  Transmission Date: 20171127
  Serious: Yes (Hospitalization)
  Sender: FDA-Public Use
  Company Number: US-ACTELION-A-NJ2014-106842

PATIENT
  Age: 67 Year
  Sex: Female

DRUGS (24)
  1. OPSUMIT [Suspect]
     Active Substance: MACITENTAN
     Dosage: 10 MG
     Route: 048
     Dates: start: 20140924, end: 20141120
  2. PREDNISONE. [Concomitant]
     Active Substance: PREDNISONE
     Dosage: 5 MG, QD
  3. TORSEMIDE. [Concomitant]
     Active Substance: TORSEMIDE
     Dosage: 20 MG, QD
  4. XARELTO [Concomitant]
     Active Substance: RIVAROXABAN
     Dosage: 15 MG, UNK
  5. NORVASC [Concomitant]
     Active Substance: AMLODIPINE BESYLATE
  6. POTASSIUM CHLORIDE. [Concomitant]
     Active Substance: POTASSIUM CHLORIDE
     Dosage: 10 MEQ, BID
  7. FUROSEMIDE. [Concomitant]
     Active Substance: FUROSEMIDE
     Dosage: 40 MG, QD
  8. ASPIRIN. [Concomitant]
     Active Substance: ASPIRIN
     Dosage: 325 MG, Q6HRS
  9. SIMVASTIN [Concomitant]
     Active Substance: SIMVASTATIN
  10. FLUCONAZOLE. [Concomitant]
     Active Substance: FLUCONAZOLE
     Dosage: 200 MG, QD
  11. PROTONIX [Concomitant]
     Active Substance: PANTOPRAZOLE SODIUM
     Dosage: 40 MG, QD
  12. AMLODIPINE [Concomitant]
     Active Substance: AMLODIPINE BESYLATE
     Dosage: 5 MG, QD
  13. COREG [Concomitant]
     Active Substance: CARVEDILOL
  14. MULTIVITAMIN [Concomitant]
     Active Substance: VITAMINS
     Dosage: UNK, QD
  15. DAPSON [Concomitant]
     Active Substance: DAPSONE
     Dosage: 100 MG, QD
  16. PAXIL [Concomitant]
     Active Substance: PAROXETINE HYDROCHLORIDE
  17. SOTALOL. [Concomitant]
     Active Substance: SOTALOL
     Dosage: 60 MG, BID
  18. LIPITOR [Concomitant]
     Active Substance: ATORVASTATIN CALCIUM
     Dosage: 10 MG, QD
  19. OPSUMIT [Suspect]
     Active Substance: MACITENTAN
     Indication: PULMONARY HYPERTENSION
     Dosage: 10 MG, UNK
     Route: 048
     Dates: start: 20141223, end: 20150113
  20. MYCOPHENOLATE [Concomitant]
     Active Substance: MYCOPHENOLIC ACID
     Dosage: 1000 MG, BID
  21. PAROXETINE. [Concomitant]
     Active Substance: PAROXETINE
     Dosage: 20 MG, PRN
  22. NIACIN. [Concomitant]
     Active Substance: NIACIN
     Dosage: 500 MG, QPM
  23. SILDENAFIL. [Concomitant]
     Active Substance: SILDENAFIL
     Dosage: 20 MG, Q8H
  24. GUAIFENESIN. [Concomitant]
     Active Substance: GUAIFENESIN

REACTIONS (9)
  - Jugular vein distension [Recovered/Resolved]
  - Blood bilirubin increased [Unknown]
  - Tachycardia [Not Recovered/Not Resolved]
  - Rales [Recovered/Resolved]
  - Atrial flutter [Recovered/Resolved]
  - Swelling face [Not Recovered/Not Resolved]
  - Dysphagia [Unknown]
  - Oedema [Recovered/Resolved]
  - Headache [Unknown]

NARRATIVE: CASE EVENT DATE: 20141005
